FAERS Safety Report 8840130 (Version 2)
Quarter: 2013Q1

REPORT INFORMATION
  Report Type: Spontaneous
  Country: US (occurrence: US)
  Receive Date: 20121015
  Receipt Date: 20130320
  Transmission Date: 20140127
  Serious: No
  Sender: FDA-Public Use
  Company Number: US-PFIZER INC-2012255032

PATIENT
  Age: 53 Year
  Sex: Female
  Weight: 62 kg

DRUGS (10)
  1. SOLU-CORTEF [Suspect]
     Indication: ADRENOGENITAL SYNDROME
     Dosage: 100MG/2ML
     Dates: start: 201206
  2. SOLU-CORTEF [Suspect]
     Indication: ADRENAL INSUFFICIENCY
     Dosage: 100MG/2ML
  3. SOLU-CORTEF [Suspect]
     Dosage: 100 MG/2 ML ACT-O-VIAL
     Route: 058
     Dates: start: 201209
  4. SOLU-CORTEF [Suspect]
     Dosage: 250MG/ML ACT-O-VIAL
     Route: 058
     Dates: start: 201209, end: 201210
  5. LEVOTHYROXINE [Concomitant]
     Dosage: UNK
  6. MAXALT [Concomitant]
     Dosage: UNK
  7. ESTRADIOL [Concomitant]
     Dosage: UNK
  8. VITAMIN D3 [Concomitant]
     Dosage: UNK
  9. VITAMIN B COMPLEX [Concomitant]
     Dosage: UNK
  10. FISH OIL [Concomitant]
     Dosage: UNK

REACTIONS (8)
  - Incorrect route of drug administration [Not Recovered/Not Resolved]
  - Infusion site erythema [Not Recovered/Not Resolved]
  - Infusion site pruritus [Not Recovered/Not Resolved]
  - Infusion site rash [Not Recovered/Not Resolved]
  - Product quality issue [Unknown]
  - Skin reaction [Unknown]
  - Erythema [Unknown]
  - Pruritus [Unknown]
